FAERS Safety Report 4595931-6 (Version None)
Quarter: 2005Q1

REPORT INFORMATION
  Report Type: 
  Country: None (occurrence: None)
  Receive Date: 20050224
  Receipt Date: 20050208
  Transmission Date: 20050727
  Serious: No
  Sender: FDA-Public Use
  Company Number: DE_050215232

PATIENT
  Age: 50 Year
  Sex: Female

DRUGS (3)
  1. ZYPREXA [Suspect]
     Indication: PERSONALITY DISORDER
     Dosage: 5 MG DAY
     Dates: start: 20050101
  2. FLUOXETINE [Concomitant]
  3. VOLTAREN [Concomitant]

REACTIONS (1)
  - PROTHROMBIN TIME PROLONGED [None]
